FAERS Safety Report 12296318 (Version 1)
Quarter: 2016Q2

REPORT INFORMATION
  Report Type: Spontaneous
  Country: BR (occurrence: BR)
  Receive Date: 20160422
  Receipt Date: 20160422
  Transmission Date: 20160815
  Serious: Yes (Other)
  Sender: FDA-Public Use
  Company Number: BR-JNJFOC-20151020477

PATIENT
  Sex: Female

DRUGS (1)
  1. SIMPONI [Suspect]
     Active Substance: GOLIMUMAB
     Indication: RHEUMATOID ARTHRITIS
     Route: 058
     Dates: start: 20150921, end: 20160121

REACTIONS (4)
  - Pain in extremity [Not Recovered/Not Resolved]
  - Liver disorder [Unknown]
  - Drug ineffective [Unknown]
  - Pain [Unknown]
